FAERS Safety Report 21433457 (Version 1)
Quarter: 2022Q4

REPORT INFORMATION
  Report Type: Spontaneous
  Country: US (occurrence: None)
  Receive Date: 20221010
  Receipt Date: 20221010
  Transmission Date: 20230113
  Serious: No
  Sender: FDA-Public Use
  Company Number: US-ROCHE-3016292

PATIENT
  Sex: Female

DRUGS (1)
  1. ZELBORAF [Suspect]
     Active Substance: VEMURAFENIB
     Indication: Brain neoplasm malignant
     Dosage: TAKE 720MG BY MOUTH EVERY MORNING AND 960 MG EVERY EVENING
     Route: 048
     Dates: start: 20220104

REACTIONS (6)
  - Rash [Unknown]
  - Fatigue [Unknown]
  - Nausea [Unknown]
  - Abdominal pain [Unknown]
  - Limb mass [Unknown]
  - Headache [Unknown]
